FAERS Safety Report 11286474 (Version 1)
Quarter: 2015Q3

REPORT INFORMATION
  Report Type: Spontaneous
  Country: US (occurrence: None)
  Receive Date: 20150720
  Receipt Date: 20150720
  Transmission Date: 20151125
  Serious: No
  Sender: FDA-Public Use
  Company Number: None

PATIENT
  Age: 59 Year
  Sex: Female
  Weight: 83.46 kg

DRUGS (17)
  1. WALKER SEAT [Concomitant]
     Active Substance: DEVICE
  2. TRAMADOL. [Concomitant]
     Active Substance: TRAMADOL
  3. OMEPRAZOLE. [Concomitant]
     Active Substance: OMEPRAZOLE
  4. DIAZEPAM. [Concomitant]
     Active Substance: DIAZEPAM
  5. GILENYA [Concomitant]
     Active Substance: FINGOLIMOD HYDROCHLORIDE
  6. VITAMIN D [Concomitant]
     Active Substance: CHOLECALCIFEROL
  7. CRANBERRY FRUIT [Concomitant]
  8. L-LYSINE [Concomitant]
     Active Substance: LYSINE
  9. CANE [Concomitant]
  10. ADVIL [Concomitant]
     Active Substance: IBUPROFEN
  11. NEURONTIN [Concomitant]
     Active Substance: GABAPENTIN
  12. CALCIUM WITH MAGNESIUM AND ZINC [Concomitant]
  13. AMPYRA [Suspect]
     Active Substance: DALFAMPRIDINE
     Indication: MULTIPLE SCLEROSIS
     Dosage: 1 PILL
     Route: 048
  14. MOBILITY SCOOTER [Concomitant]
  15. WALKING STICKS [Concomitant]
  16. CITALOPRAM [Concomitant]
     Active Substance: CITALOPRAM HYDROBROMIDE
  17. GINKO BILOBA [Concomitant]
     Active Substance: GINKGO

REACTIONS (3)
  - Drug ineffective [None]
  - Condition aggravated [None]
  - Balance disorder [None]

NARRATIVE: CASE EVENT DATE: 20150718
